FAERS Safety Report 5913292-4 (Version None)
Quarter: 2008Q4

REPORT INFORMATION
  Report Type: 
  Country: None (occurrence: None)
  Receive Date: 20081008
  Receipt Date: 20081008
  Transmission Date: 20090506
  Serious: Yes (Other)
  Sender: FDA-Public Use
  Company Number: None

PATIENT
  Age: 8 Month
  Sex: Male
  Weight: 9.5255 kg

DRUGS (1)
  1. AMOXIL [Suspect]
     Indication: EAR INFECTION
     Dosage: 1 T PO
     Route: 048
     Dates: start: 20080915, end: 20080921

REACTIONS (1)
  - ERYTHEMA MULTIFORME [None]
